FAERS Safety Report 5019068-7 (Version None)
Quarter: 2006Q2

REPORT INFORMATION
  Report Type: 
  Country: None (occurrence: None)
  Receive Date: 20060606
  Receipt Date: 20060530
  Transmission Date: 20061013
  Serious: Yes (Hospitalization)
  Sender: FDA-Public Use
  Company Number: US-BRISTOL-MYERS SQUIBB COMPANY-13393491

PATIENT
  Age: 69 Year
  Sex: Female

DRUGS (4)
  1. CYCLOPHOSPHAMIDE [Suspect]
     Indication: BREAST CANCER STAGE III
  2. DOXORUBICIN HCL [Suspect]
     Indication: BREAST CANCER STAGE III
  3. DOCETAXEL [Suspect]
     Indication: BREAST CANCER STAGE III
  4. NEULASTA [Suspect]
     Indication: BREAST CANCER STAGE III

REACTIONS (1)
  - PALMAR-PLANTAR ERYTHRODYSAESTHESIA SYNDROME [None]
